FAERS Safety Report 13561178 (Version 1)
Quarter: 2020Q3

REPORT INFORMATION
  Report Type: Report from Study
  Country: RU (occurrence: RU)
  Receive Date: 20170518
  Receipt Date: 20170518
  Transmission Date: 20201104
  Serious: Yes (Death, Hospitalization, Other)
  Sender: FDA-Public Use
  Company Number: RU-ASTRAZENECA-2016SE46511

PATIENT
  Age: 26523 Day
  Sex: Female

DRUGS (10)
  1. TREMELIMUMAB. [Suspect]
     Active Substance: TREMELIMUMAB
     Indication: NON-SMALL CELL LUNG CANCER
     Dosage: 76.0MG ONCE/SINGLE ADMINISTRATION
     Route: 042
     Dates: start: 20151112, end: 20151112
  2. MEDI4736 [Suspect]
     Active Substance: DURVALUMAB
     Indication: NON-SMALL CELL LUNG CANCER
     Dosage: 1520.0MG ONCE/SINGLE ADMINISTRATION
     Route: 042
     Dates: start: 20151112, end: 20151112
  3. TRAMADOL. [Concomitant]
     Active Substance: TRAMADOL
     Indication: CHEST PAIN
     Dosage: 50.0MG AS REQUIRED
     Route: 048
     Dates: start: 20151226
  4. MEDI4736 [Suspect]
     Active Substance: DURVALUMAB
     Indication: NON-SMALL CELL LUNG CANCER
     Dosage: 1400.0MG ONCE/SINGLE ADMINISTRATION
     Route: 042
     Dates: start: 20151210, end: 20151210
  5. TREMELIMUMAB. [Suspect]
     Active Substance: TREMELIMUMAB
     Indication: NON-SMALL CELL LUNG CANCER
     Dosage: 69.0MG ONCE/SINGLE ADMINISTRATION
     Route: 042
     Dates: start: 20160107, end: 20160107
  6. MEDI4736 [Suspect]
     Active Substance: DURVALUMAB
     Indication: NON-SMALL CELL LUNG CANCER
     Dosage: 1380.0MG ONCE/SINGLE ADMINISTRATION
     Route: 042
     Dates: start: 20160107, end: 20160107
  7. TREMELIMUMAB. [Suspect]
     Active Substance: TREMELIMUMAB
     Indication: NON-SMALL CELL LUNG CANCER
     Dosage: 70.0MG ONCE/SINGLE ADMINISTRATION
     Route: 042
     Dates: start: 20151210, end: 20151210
  8. MEDI4736 [Suspect]
     Active Substance: DURVALUMAB
     Indication: NON-SMALL CELL LUNG CANCER
     Dosage: 1540.0MG ONCE/SINGLE ADMINISTRATION
     Route: 042
     Dates: start: 20160331, end: 20160331
  9. EUTHYROX [Concomitant]
     Active Substance: LEVOTHYROXINE SODIUM
     Indication: HYPOTHYROIDISM
     Route: 048
     Dates: start: 20160219
  10. MEDI4736 [Suspect]
     Active Substance: DURVALUMAB
     Indication: NON-SMALL CELL LUNG CANCER
     Dosage: 1460.0MG ONCE/SINGLE ADMINISTRATION
     Route: 042
     Dates: start: 20160303, end: 20160303

REACTIONS (1)
  - Drug-induced liver injury [Recovered/Resolved]

NARRATIVE: CASE EVENT DATE: 20160426
